FAERS Safety Report 11933326 (Version 3)
Quarter: 2020Q3

REPORT INFORMATION
  Report Type: Report from Study
  Country: JP (occurrence: JP)
  Receive Date: 20160121
  Receipt Date: 20161230
  Transmission Date: 20201104
  Serious: Yes (Life-Threatening)
  Sender: FDA-Public Use
  Company Number: JP-ROCHE-1567281

PATIENT
  Age: 68 Year
  Sex: Male
  Weight: 86 kg

DRUGS (9)
  1. ALECTINIB. [Suspect]
     Active Substance: ALECTINIB
     Indication: LUNG ADENOCARCINOMA
     Route: 048
     Dates: start: 20141203, end: 20150109
  2. BAYASPIRIN [Concomitant]
     Active Substance: ASPIRIN
     Indication: PROPHYLAXIS
     Dosage: DOSAGE DURING A DAY: 100 (UNIT UNCERTAINTY)?THE FRACTIONATION DOSE FREQUENCY IS UNCERTAIN.
     Route: 048
  3. ERYTHROCIN [Concomitant]
     Active Substance: ERYTHROMYCIN LACTOBIONATE
     Indication: PROPHYLAXIS
     Dosage: DOSAGE DURING A DAY: 700 (UNIT UNCERTAINTY)?THE FRACTIONATION DOSE FREQUENCY IS UNCERTAIN.
     Route: 048
  4. TANATRIL [Concomitant]
     Active Substance: IMIDAPRIL
     Indication: PROPHYLAXIS
     Dosage: DOSAGE DURING A DAY: 5 (UNIT UNCERTAINTY)?THE FRACTIONATION DOSE FREQUENCY IS UNCERTAIN.
     Route: 048
  5. ULTIBRO [Concomitant]
     Active Substance: GLYCOPYRRONIUM\INDACATEROL
     Indication: PROPHYLAXIS
     Dosage: DOSAGE IS UNCERTAIN. ?THE FRACTIONATION DOSE FREQUENCY IS UNCERTAIN.
     Route: 055
  6. UNIPHYL LA [Concomitant]
     Active Substance: THEOPHYLLINE ANHYDROUS
     Indication: PROPHYLAXIS
     Dosage: DOSAGE DURING A DAY: 200 (UNIT UNCERTAINTY)?THE FRACTIONATION DOSE FREQUENCY IS UNCERTAIN.
     Route: 048
  7. PREDNISOLONE. [Concomitant]
     Active Substance: PREDNISOLONE
     Indication: PROPHYLAXIS
     Dosage: DOSAGE DURING A DAY: 5 (UNIT UNCERTAINTY)?THE FRACTIONATION DOSE FREQUENCY IS UNCERTAIN.
     Route: 048
  8. ACTOS [Concomitant]
     Active Substance: PIOGLITAZONE HYDROCHLORIDE
     Indication: PROPHYLAXIS
     Dosage: DOSAGE DURING A DAY: 30 (UNIT UNCERTAINTY)?THE FRACTIONATION DOSE FREQUENCY IS UNCERTAIN.
     Route: 048
  9. NIFEDIPINE CR [Concomitant]
     Active Substance: NIFEDIPINE
     Indication: PROPHYLAXIS
     Dosage: DOSAGE DURING A DAY: 20 (UNIT UNCERTAINTY)?THE FRACTIONATION DOSE FREQUENCY IS UNCERTAIN.
     Route: 048

REACTIONS (1)
  - Eosinophilic pneumonia acute [Recovered/Resolved]

NARRATIVE: CASE EVENT DATE: 20150109
